APPROVED DRUG PRODUCT: ACETAMINOPHEN
Active Ingredient: ACETAMINOPHEN
Strength: 1GM/100ML (10MG/ML)
Dosage Form/Route: SOLUTION;INTRAVENOUS
Application: N204957 | Product #002 | TE Code: AP2
Applicant: B BRAUN MEDICAL INC
Approved: Feb 18, 2021 | RLD: Yes | RS: Yes | Type: RX